FAERS Safety Report 5205961-9 (Version None)
Quarter: 2007Q1

REPORT INFORMATION
  Report Type: 
  Country: None (occurrence: None)
  Receive Date: 20070108
  Receipt Date: 20061218
  Transmission Date: 20070707
  Serious: Yes (Death)
  Sender: FDA-Public Use
  Company Number: 530#5#2006-00070

PATIENT
  Age: 77 Year
  Sex: Male

DRUGS (11)
  1. PROSTAVASIN-40UG (ALPROSTADIL (PAOD)) [Suspect]
     Indication: PERIPHERAL ISCHAEMIA
     Dosage: 2 X 40 UG PER DAY INTRAVENOUS DRIP
     Route: 041
     Dates: start: 20061204, end: 20061216
  2. PHENAZEPAM .5MG, TABLETS (PHENAZEPAM) [Concomitant]
  3. INDAPAMINE 1.5MG, TABLETS SR (INDAPAMIDE) [Concomitant]
  4. ENALAPRIL MALEATE [Concomitant]
  5. ACETYLSALICYLIC ACID 125MG, TABLETS (ACETYLSALICYIC ACID) [Concomitant]
  6. VERAPAMIL 40 MG, TABLETS (VERAPAMIL) [Concomitant]
  7. CALF BLOOD DIALYSATE 10MG, SOLUTION (BLOOD CALF, DEPROT., LMW PORTION) [Concomitant]
  8. THIOCTIC ACID 300MG, SOLUTION (THIOCTIC ACID) [Concomitant]
  9. FUROSEMIDE 40MG, SOLUTION (FUROSEMIDE) [Concomitant]
  10. INSULIN ACTRAPID 10IU, SOLUTION (INSULIN HUMAN) [Concomitant]
  11. INSULIN PROTAPHAN HUMAN 14 IU, SOLUTION (INSULIN HUMAN INJECTION, ISOP [Concomitant]

REACTIONS (4)
  - ACUTE MYOCARDIAL INFARCTION [None]
  - LEFT VENTRICULAR FAILURE [None]
  - PULMONARY OEDEMA [None]
  - RESPIRATORY FAILURE [None]
